FAERS Safety Report 20877451 (Version 1)
Quarter: 2022Q2

REPORT INFORMATION
  Report Type: Spontaneous
  Country: US (occurrence: None)
  Receive Date: 20220526
  Receipt Date: 20220526
  Transmission Date: 20220721
  Serious: Yes (Hospitalization)
  Sender: FDA-Public Use
  Company Number: None

PATIENT
  Sex: Male

DRUGS (1)
  1. CAPECITABINE [Suspect]
     Active Substance: CAPECITABINE
     Indication: Colon cancer
     Dosage: TAKE 5 TABLETS BY MOUTH IN THE MORNING AND 4 TABLETS IN THE EVENING.?
     Route: 048
     Dates: start: 20220514

REACTIONS (1)
  - Hospitalisation [None]
